FAERS Safety Report 20224547 (Version 2)
Quarter: 2022Q1

REPORT INFORMATION
  Report Type: Spontaneous
  Country: JP (occurrence: JP)
  Receive Date: 20211223
  Receipt Date: 20220131
  Transmission Date: 20220423
  Serious: Yes (Death, Hospitalization, Disabling, Other)
  Sender: FDA-Public Use
  Company Number: JP-GLAXOSMITHKLINE-JP2021JPN065493

PATIENT
  Age: 68 Year
  Sex: Male
  Weight: 50.2 kg

DRUGS (29)
  1. DUTASTERIDE [Suspect]
     Active Substance: DUTASTERIDE
     Indication: Benign prostatic hyperplasia
     Dosage: 0.5 MG, QD
     Route: 048
     Dates: start: 20170524, end: 20170808
  2. EPERISONE HYDROCHLORIDE [Concomitant]
     Active Substance: EPERISONE HYDROCHLORIDE
     Route: 065
     Dates: start: 20170608
  3. REBAMIPIDE [Concomitant]
     Active Substance: REBAMIPIDE
     Route: 065
     Dates: start: 20170608
  4. ZEPOLAS TAPE [Concomitant]
     Route: 065
     Dates: start: 20170608
  5. DICLOFENAC SODIUM [Concomitant]
     Active Substance: DICLOFENAC SODIUM
     Route: 065
     Dates: start: 20170608
  6. ASPIRIN [Concomitant]
     Active Substance: ASPIRIN
     Route: 065
     Dates: start: 20170710
  7. AMLODIPINE [Concomitant]
     Active Substance: AMLODIPINE BESYLATE
     Route: 065
     Dates: start: 20170710
  8. XARELTO [Concomitant]
     Active Substance: RIVAROXABAN
     Route: 065
     Dates: start: 20170710
  9. ATENOLOL [Concomitant]
     Active Substance: ATENOLOL
     Route: 065
     Dates: start: 20170710
  10. RABEPRAZOLE SODIUM [Concomitant]
     Active Substance: RABEPRAZOLE SODIUM
     Route: 065
     Dates: start: 20170710
  11. FEBUXOSTAT [Concomitant]
     Active Substance: FEBUXOSTAT
     Route: 065
     Dates: start: 20170710
  12. LAMICTAL [Suspect]
     Active Substance: LAMOTRIGINE
     Dosage: 25 MG, QOD; 25 MG, QD; 50 MG, QD
     Route: 048
     Dates: start: 20170727, end: 20170807
  13. ZETIA [Concomitant]
     Active Substance: EZETIMIBE
     Route: 065
     Dates: start: 20170710
  14. PITAVASTATIN CALCIUM [Concomitant]
     Active Substance: PITAVASTATIN CALCIUM
     Route: 065
     Dates: start: 20170710
  15. ZACRAS COMBINATION HD [Concomitant]
     Route: 065
     Dates: start: 20170710
  16. MIYA-BM [Concomitant]
     Active Substance: CLOSTRIDIUM BUTYRICUM SPORES STRAIN M-55
     Route: 065
     Dates: start: 20170710
  17. UNSPECIFIED INGREDIENT [Concomitant]
     Active Substance: UNSPECIFIED INGREDIENT
     Route: 065
     Dates: start: 20170710
  18. URIEF OD [Concomitant]
     Route: 065
     Dates: start: 20170524
  19. CIPROFLOXACIN [Concomitant]
     Active Substance: CIPROFLOXACIN
     Route: 065
     Dates: start: 20170524
  20. AROFUTO [Concomitant]
     Route: 065
     Dates: start: 20170714
  21. LOXOPROFEN SODIUM [Concomitant]
     Active Substance: LOXOPROFEN SODIUM
     Route: 065
     Dates: start: 20170714
  22. KETOPROFEN [Concomitant]
     Active Substance: KETOPROFEN
     Route: 065
     Dates: start: 20170714
  23. QUETIAPINE FUMARATE [Concomitant]
     Active Substance: QUETIAPINE FUMARATE
     Route: 065
     Dates: start: 20150821, end: 20170807
  24. TRAMCET COMBINATION [Concomitant]
     Route: 065
     Dates: start: 20170608
  25. VALPROATE SODIUM [Concomitant]
     Active Substance: VALPROATE SODIUM
     Route: 065
     Dates: start: 20160527, end: 20170807
  26. LEVOMEPROMAZINE [Concomitant]
     Active Substance: LEVOMEPROMAZINE
     Route: 065
     Dates: start: 20170629, end: 20170807
  27. LUNESTA [Concomitant]
     Active Substance: ESZOPICLONE
     Route: 065
     Dates: start: 20161111, end: 20170807
  28. METOCLOPRAMIDE [Concomitant]
     Active Substance: METOCLOPRAMIDE
     Route: 065
     Dates: start: 20170608
  29. LORCAM [Concomitant]
     Route: 065
     Dates: start: 20170608

REACTIONS (20)
  - Toxic epidermal necrolysis [Fatal]
  - Blister [Not Recovered/Not Resolved]
  - Oral mucosa erosion [Not Recovered/Not Resolved]
  - Lip erosion [Not Recovered/Not Resolved]
  - Pneumonia aspiration [Not Recovered/Not Resolved]
  - Full blood count decreased [Not Recovered/Not Resolved]
  - Acute kidney injury [Not Recovered/Not Resolved]
  - Cytomegalovirus infection [Not Recovered/Not Resolved]
  - Pseudomonal sepsis [Not Recovered/Not Resolved]
  - Candida sepsis [Not Recovered/Not Resolved]
  - Gastrointestinal perforation [Not Recovered/Not Resolved]
  - Stevens-Johnson syndrome [Fatal]
  - Immobilisation syndrome [Not Recovered/Not Resolved]
  - Respiratory failure [Fatal]
  - Pyrexia [Not Recovered/Not Resolved]
  - Oropharyngeal pain [Not Recovered/Not Resolved]
  - Rash [Not Recovered/Not Resolved]
  - Skin exfoliation [Not Recovered/Not Resolved]
  - Drug-induced liver injury [Not Recovered/Not Resolved]
  - Erythema [Not Recovered/Not Resolved]

NARRATIVE: CASE EVENT DATE: 20170804
